FAERS Safety Report 4990264-8 (Version None)
Quarter: 2006Q2

REPORT INFORMATION
  Report Type: 
  Country: None (occurrence: None)
  Receive Date: 20060503
  Receipt Date: 20060501
  Transmission Date: 20061013
  Serious: Yes (Other)
  Sender: FDA-Public Use
  Company Number: CA-GLAXOSMITHKLINE-A0604039A

PATIENT
  Age: 56 Year
  Sex: Male

DRUGS (9)
  1. AVANDIA [Suspect]
     Indication: DRUG USE FOR UNKNOWN INDICATION
     Dosage: 8MG PER DAY
     Route: 048
  2. VIREAD [Suspect]
     Indication: DRUG USE FOR UNKNOWN INDICATION
     Dosage: 300MG PER DAY
     Route: 065
  3. LAMIVUDINE [Concomitant]
  4. ABACAVIR [Concomitant]
  5. AZITHROMYCIN [Concomitant]
  6. KALETRA [Concomitant]
  7. SAQUINAVIR [Concomitant]
  8. SEPTRA DS [Concomitant]
  9. ZESTORETIC [Concomitant]

REACTIONS (3)
  - ABDOMINAL DISTENSION [None]
  - BLOOD CREATININE INCREASED [None]
  - RENAL FAILURE [None]
